FAERS Safety Report 9215877 (Version 1)
Quarter: 2013Q2

REPORT INFORMATION
  Report Type: Report from Study
  Country: CA (occurrence: CA)
  Receive Date: 20130408
  Receipt Date: 20130408
  Transmission Date: 20140414
  Serious: Yes (Other)
  Sender: FDA-Public Use
  Company Number: CA-JNJFOC-20130400928

PATIENT
  Age: 59 Year
  Sex: Male
  Weight: 92 kg

DRUGS (5)
  1. REMICADE [Suspect]
     Indication: PSORIASIS
     Route: 042
  2. GLICLAZIDE [Concomitant]
     Indication: DIABETES MELLITUS
     Route: 065
  3. ONGLYZA [Concomitant]
     Indication: DIABETES MELLITUS
     Route: 065
  4. CELEBREX [Concomitant]
     Indication: PSORIATIC ARTHROPATHY
     Dosage: V0: 2-3 YEARS AGO FROM DATE OF THE REPORT
     Route: 065
  5. CRESTOR [Concomitant]
     Indication: BLOOD CHOLESTEROL INCREASED
     Dosage: V0: STARTED COUPLE OF YEARS AGO FROM THE DATE OF THIS REPORT.
     Route: 065

REACTIONS (2)
  - Blood glucose increased [Unknown]
  - Weight decreased [Unknown]
